FAERS Safety Report 6713151-3 (Version None)
Quarter: 2010Q2

REPORT INFORMATION
  Report Type: 
  Country: None (occurrence: None)
  Receive Date: 20100506
  Receipt Date: 20100422
  Transmission Date: 20101027
  Serious: Yes (Hospitalization)
  Sender: FDA-Public Use
  Company Number: PHHY2010GB27857

PATIENT
  Sex: Male

DRUGS (12)
  1. CLOZARIL [Suspect]
     Indication: SCHIZOPHRENIA
     Dosage: 100 MG MANE AND 350 MG NOCTE
     Dates: start: 20080821
  2. VENLAFAXINE [Concomitant]
     Dosage: 150 MG
     Route: 048
  3. LAMOTRIGINE [Concomitant]
     Dosage: 100 MG NOCTE
     Route: 048
  4. SIMVASTATIN [Concomitant]
     Dosage: 20 MG NOCTE
  5. PERINDOPRIL [Concomitant]
     Dosage: 2 MG NOCTE
  6. METFORMIN [Concomitant]
     Dosage: 1 G BD
  7. LANSOPRAZOLE [Concomitant]
     Dosage: 30 MG
  8. DOMPERIDONE [Concomitant]
     Dosage: 10 MG BD
  9. ZOLPIDEM [Concomitant]
     Dosage: 10 MG NOCTE
  10. OLANZAPINE [Concomitant]
     Dosage: 10 MG NOCTE
  11. METHYLPREDNISOLONE 4MG TAB [Concomitant]
     Dosage: 15 MG AM, 30 MG NOCTE
  12. LACTULOSE [Concomitant]
     Dosage: 20 MG BD

REACTIONS (3)
  - DEPRESSIVE SYMPTOM [None]
  - MENTAL IMPAIRMENT [None]
  - SUICIDAL IDEATION [None]
